FAERS Safety Report 5366048-8 (Version None)
Quarter: 2007Q2

REPORT INFORMATION
  Report Type: 
  Country: None (occurrence: None)
  Receive Date: 20070605
  Receipt Date: 20070314
  Transmission Date: 20071010
  Serious: Yes (Other)
  Sender: FDA-Public Use
  Company Number: SPV1-2007-01382

PATIENT
  Age: 15 Year
  Sex: Female

DRUGS (1)
  1. DAYTRANA [Suspect]
     Indication: ATTENTION DEFICIT/HYPERACTIVITY DISORDER
     Dosage: 20MG, TRANSDERMAL
     Route: 062
     Dates: start: 20061001, end: 20070302

REACTIONS (6)
  - APPLICATION SITE ERYTHEMA [None]
  - APPLICATION SITE IRRITATION [None]
  - INFECTIOUS MONONUCLEOSIS [None]
  - ORAL CANDIDIASIS [None]
  - URTICARIA GENERALISED [None]
  - VULVOVAGINAL MYCOTIC INFECTION [None]
